FAERS Safety Report 8914333 (Version 4)
Quarter: 2013Q4

REPORT INFORMATION
  Report Type: Report from Study
  Country: CA (occurrence: CA)
  Receive Date: 20121119
  Receipt Date: 20131108
  Transmission Date: 20140711
  Serious: Yes (Other)
  Sender: FDA-Public Use
  Company Number: CA-JNJFOC-20121104949

PATIENT
  Age: 61 Year
  Sex: Male
  Weight: 123.38 kg

DRUGS (13)
  1. USTEKINUMAB [Suspect]
     Indication: PSORIASIS
     Dates: start: 200904
  2. NITROGLYCERIN [Concomitant]
     Route: 065
     Dates: start: 1997
  3. LANTUS [Concomitant]
     Route: 065
     Dates: start: 200908
  4. COVERSYL [Concomitant]
     Route: 048
     Dates: start: 1997
  5. FUROSEMIDE [Concomitant]
     Route: 048
     Dates: start: 1997
  6. METOPROLOL [Concomitant]
     Route: 048
     Dates: start: 1997
  7. METFORMIN [Concomitant]
     Route: 048
     Dates: start: 1994
  8. ADALAT [Concomitant]
     Route: 048
     Dates: start: 200908
  9. NOVORAPID [Concomitant]
     Dosage: 50 UTS
     Route: 065
     Dates: start: 2011
  10. CRESTOR [Concomitant]
     Route: 048
     Dates: start: 2009
  11. PLAVIX [Concomitant]
     Dosage: 50 UTS
     Route: 048
     Dates: start: 2009
  12. DIOVAN / HCTZ [Concomitant]
     Dosage: 160/12.5
     Route: 048
     Dates: start: 2009
  13. NITRO [Concomitant]
     Dosage: Q 5 MIN X 3 S/L AS NEEDED
     Route: 048
     Dates: start: 1997

REACTIONS (1)
  - Malignant melanoma in situ [Recovered/Resolved]
